FAERS Safety Report 10534154 (Version 1)
Quarter: 2014Q4

REPORT INFORMATION
  Report Type: Spontaneous
  Country: CA (occurrence: None)
  Receive Date: 20141021
  Receipt Date: 20141021
  Transmission Date: 20150529
  Serious: Yes (Hospitalization)
  Sender: FDA-Public Use
  Company Number: None

PATIENT
  Age: 78 Year
  Sex: Male
  Weight: 61.2 kg

DRUGS (1)
  1. NEXAVAR [Suspect]
     Active Substance: SORAFENIB
     Dosage: 3800 PREVIOUS DOSE REDUCTION TAKES 200 MG BY MOUTH DAILY

REACTIONS (8)
  - Troponin increased [None]
  - Electrocardiogram abnormal [None]
  - Asthenia [None]
  - Fatigue [None]
  - Chest pain [None]
  - Pleuritic pain [None]
  - Oedema peripheral [None]
  - Pleural effusion [None]

NARRATIVE: CASE EVENT DATE: 20140930
